FAERS Safety Report 21902758 (Version 1)
Quarter: 2023Q1

REPORT INFORMATION
  Report Type: Report from Study
  Country: AR (occurrence: AR)
  Receive Date: 20230124
  Receipt Date: 20230124
  Transmission Date: 20230418
  Serious: Yes (Other)
  Sender: FDA-Public Use
  Company Number: AR-002147023-NVSC2023AR013947

PATIENT
  Age: 51 Year
  Sex: Female

DRUGS (1)
  1. KISQALI [Suspect]
     Active Substance: RIBOCICLIB
     Indication: Breast cancer metastatic
     Dosage: 400 MG, QD (VIA MOUTH)
     Route: 048
     Dates: start: 20190601, end: 20221015

REACTIONS (2)
  - Spinal fracture [Unknown]
  - Metastasis [Unknown]

NARRATIVE: CASE EVENT DATE: 20221015
